FAERS Safety Report 11068992 (Version 13)
Quarter: 2017Q1

REPORT INFORMATION
  Report Type: Report from Study
  Country: CA (occurrence: CA)
  Receive Date: 20150427
  Receipt Date: 20170228
  Transmission Date: 20170428
  Serious: Yes (Other)
  Sender: FDA-Public Use
  Company Number: PHHY2015CA039010

PATIENT
  Age: 53 Year
  Sex: Female

DRUGS (5)
  1. SANDOSTATIN LAR DEPOT [Suspect]
     Active Substance: OCTREOTIDE ACETATE
     Dosage: 30 MG, QMO (EVERY 4 WEEKS)
     Route: 030
     Dates: start: 2016
  2. EMLA [Concomitant]
     Active Substance: LIDOCAINE\PRILOCAINE
     Indication: PRODUCT USED FOR UNKNOWN INDICATION
     Route: 065
  3. SANDOSTATIN LAR DEPOT [Suspect]
     Active Substance: OCTREOTIDE ACETATE
     Indication: NEUROENDOCRINE TUMOUR
     Dosage: 20 MG, QMO (EVERY FOUR WEEKS)
     Route: 030
     Dates: start: 20150326
  4. SANDOSTATIN LAR DEPOT [Suspect]
     Active Substance: OCTREOTIDE ACETATE
     Dosage: 30 MG, TIW
     Route: 030
  5. SANDOSTATIN [Suspect]
     Active Substance: OCTREOTIDE ACETATE
     Indication: NEUROENDOCRINE TUMOUR
     Dosage: 100 UG, TID (TO CONTINUE ONE WEEK POST 1ST LAR)
     Route: 058
     Dates: start: 20150309, end: 201504

REACTIONS (24)
  - Blood pressure systolic increased [Unknown]
  - Flushing [Unknown]
  - Injection site mass [Unknown]
  - Anxiety [Unknown]
  - Bone pain [Unknown]
  - Pelvic pain [Unknown]
  - Drug administration error [Unknown]
  - Inappropriate schedule of drug administration [Unknown]
  - Micturition urgency [Unknown]
  - Diarrhoea [Unknown]
  - Abdominal distension [Recovered/Resolved]
  - Drug ineffective [Unknown]
  - Injection site pain [Unknown]
  - Feeling abnormal [Recovered/Resolved]
  - Malaise [Unknown]
  - Tremor [Unknown]
  - Hot flush [Unknown]
  - Gastrointestinal disorder [Unknown]
  - Pain in extremity [Unknown]
  - Flatulence [Recovered/Resolved]
  - Needle issue [Unknown]
  - Pain [Unknown]
  - Shock [Unknown]
  - Underdose [Unknown]

NARRATIVE: CASE EVENT DATE: 20150326
